FAERS Safety Report 5288962-4 (Version None)
Quarter: 2007Q2

REPORT INFORMATION
  Report Type: 
  Country: None (occurrence: None)
  Receive Date: 20070405
  Receipt Date: 20070324
  Transmission Date: 20071010
  Serious: Yes (Hospitalization, Other)
  Sender: FDA-Public Use
  Company Number: US-PFIZER INC-2007012327

PATIENT
  Sex: Female

DRUGS (5)
  1. ZYVOX [Suspect]
     Indication: BACTERAEMIA
     Route: 042
  2. ZYVOX [Suspect]
     Indication: BACTERAEMIA
     Route: 048
  3. DURAGESIC-100 [Suspect]
  4. CIPROFLOXACIN [Suspect]
  5. DRUG, UNSPECIFIED [Suspect]

REACTIONS (4)
  - BLOOD CREATININE INCREASED [None]
  - BLOOD PRESSURE DECREASED [None]
  - DYSPNOEA [None]
  - NEPHRITIS INTERSTITIAL [None]
